FAERS Safety Report 6059077-2 (Version None)
Quarter: 2009Q1

REPORT INFORMATION
  Report Type: 
  Country: None (occurrence: None)
  Receive Date: 20090130
  Receipt Date: 20090128
  Transmission Date: 20090719
  Serious: Yes (Hospitalization)
  Sender: FDA-Public Use
  Company Number: B0556328A

PATIENT
  Age: 81 Year
  Sex: Male

DRUGS (9)
  1. AMOXICILLIN + CLAVULANATE POTASSIUM [Suspect]
     Indication: EYE INFECTION
     Route: 048
     Dates: start: 20081007, end: 20081014
  2. FLUCLOXACILLIN [Concomitant]
     Indication: EYE INFECTION
     Dosage: 1000MG PER DAY
     Route: 048
     Dates: start: 20080926, end: 20081003
  3. CHLORAMPHENICOL [Concomitant]
     Indication: EYE INFECTION
     Route: 047
     Dates: start: 20080926, end: 20081003
  4. FUSIDIC ACID [Concomitant]
     Indication: EYE INFECTION
     Route: 047
     Dates: start: 20081007, end: 20081014
  5. FINASTERIDE [Concomitant]
     Dosage: 5MG PER DAY
     Route: 048
     Dates: start: 20041019
  6. LISINOPRIL [Concomitant]
     Indication: HYPERTENSION
     Dosage: 10MG PER DAY
     Route: 048
     Dates: start: 20080919
  7. SALBUTAMOL [Concomitant]
     Indication: CHRONIC OBSTRUCTIVE PULMONARY DISEASE
     Route: 055
     Dates: start: 20070627
  8. SERETIDE [Concomitant]
     Indication: CHRONIC OBSTRUCTIVE PULMONARY DISEASE
     Route: 055
     Dates: start: 20061012
  9. PREDNISOLONE [Concomitant]
     Dosage: 5MG PER DAY
     Route: 048
     Dates: start: 20070619

REACTIONS (2)
  - CHOLELITHIASIS [None]
  - JAUNDICE [None]
